FAERS Safety Report 5698142-6 (Version None)
Quarter: 2008Q2

REPORT INFORMATION
  Report Type: 
  Country: None (occurrence: None)
  Receive Date: 20080408
  Receipt Date: 20080328
  Transmission Date: 20081010
  Serious: Yes (Hospitalization)
  Sender: FDA-Public Use
  Company Number: US-ELI_LILLY_AND_COMPANY-US200712000868

PATIENT
  Sex: Female

DRUGS (4)
  1. BYETTA [Suspect]
     Dosage: 5 UG, 2/D
     Route: 058
     Dates: start: 20060101
  2. BYETTA [Suspect]
     Dosage: 10 UG, 2/D
     Route: 058
  3. METFORMIN HCL [Concomitant]
     Dosage: UNK, UNKNOWN
  4. ACTOS [Concomitant]
     Dosage: UNK, UNKNOWN

REACTIONS (3)
  - INJECTION SITE ABSCESS [None]
  - OSTEOARTHRITIS [None]
  - WOUND INFECTION STAPHYLOCOCCAL [None]
